FAERS Safety Report 6082639-3 (Version None)
Quarter: 2009Q1

REPORT INFORMATION
  Report Type: 
  Country: None (occurrence: None)
  Receive Date: 20090218
  Receipt Date: 20090211
  Transmission Date: 20090719
  Serious: Yes (Disabling)
  Sender: FDA-Public Use
  Company Number: US-GILEAD-2008-0019006

PATIENT
  Sex: Female
  Weight: 117.13 kg

DRUGS (7)
  1. LETAIRIS [Suspect]
     Route: 048
     Dates: start: 20080923, end: 20081105
  2. LETAIRIS [Suspect]
     Route: 048
     Dates: start: 20081119, end: 20081221
  3. LASIX [Concomitant]
  4. ALLOPURINOL [Concomitant]
     Route: 048
  5. COUMADIN [Concomitant]
     Route: 048
  6. POTASSIUM CHLORIDE [Concomitant]
     Route: 048
  7. TOPROL-XL [Concomitant]
     Route: 048

REACTIONS (5)
  - DYSPNOEA [None]
  - FATIGUE [None]
  - FLUID RETENTION [None]
  - HEADACHE [None]
  - NAUSEA [None]
